FAERS Safety Report 5418788-X (Version None)
Quarter: 2007Q3

REPORT INFORMATION
  Report Type: 
  Country: None (occurrence: None)
  Receive Date: 20070718
  Receipt Date: 20060803
  Transmission Date: 20080115
  Serious: Yes (Other)
  Sender: FDA-Public Use
  Company Number: 2006096209

PATIENT
  Age: 72 Year
  Sex: Female
  Weight: 52.1637 kg

DRUGS (8)
  1. CELEBREX [Suspect]
     Indication: ARTHRITIS
     Dosage: 200 MG
     Dates: end: 20020101
  2. CELEBREX [Suspect]
     Indication: BACK PAIN
     Dosage: 200 MG
     Dates: end: 20020101
  3. LYRICA [Suspect]
     Indication: DIABETIC NEUROPATHY
     Dosage: 50 MG (50 MG, 1 IN 1 D)
     Dates: start: 20060718, end: 20060730
  4. LOPRESSOR [Concomitant]
  5. VALSARTAN [Concomitant]
  6. NORVASC [Concomitant]
  7. LASIX [Concomitant]
  8. ACETYLSALICYLIC ACID SRT [Concomitant]

REACTIONS (3)
  - CATARACT [None]
  - DIABETES MELLITUS [None]
  - RENAL FAILURE [None]
